FAERS Safety Report 20586969 (Version 2)
Quarter: 2022Q2

REPORT INFORMATION
  Report Type: Spontaneous
  Country: US (occurrence: None)
  Receive Date: 20220314
  Receipt Date: 20220411
  Transmission Date: 20220721
  Serious: No
  Sender: FDA-Public Use
  Company Number: 2022A109556

PATIENT
  Age: 68 Year
  Sex: Female
  Weight: 72.6 kg

DRUGS (2)
  1. FARXIGA [Suspect]
     Active Substance: DAPAGLIFLOZIN PROPANEDIOL
     Indication: Type 2 diabetes mellitus
     Route: 048
     Dates: start: 201703, end: 20220101
  2. FARXIGA [Suspect]
     Active Substance: DAPAGLIFLOZIN PROPANEDIOL
     Indication: Type 2 diabetes mellitus
     Route: 048

REACTIONS (2)
  - Blood glucose increased [Recovering/Resolving]
  - Inability to afford medication [Unknown]

NARRATIVE: CASE EVENT DATE: 20220201
